FAERS Safety Report 23565961 (Version 1)
Quarter: 2024Q1

REPORT INFORMATION
  Report Type: Spontaneous
  Country: US (occurrence: None)
  Receive Date: 20240225
  Receipt Date: 20240225
  Transmission Date: 20240410
  Serious: Yes (Other)
  Sender: FDA-Public Use
  Company Number: None

PATIENT
  Sex: Male

DRUGS (4)
  1. SINGULAIR [Suspect]
     Active Substance: MONTELUKAST SODIUM
     Indication: Dermatitis atopic
     Dates: start: 20060601, end: 20210530
  2. SINGULAIR [Suspect]
     Active Substance: MONTELUKAST SODIUM
     Indication: Asthma
  3. DUPIXENT [Concomitant]
     Active Substance: DUPILUMAB
  4. CITALOPRAM [Concomitant]
     Active Substance: CITALOPRAM HYDROBROMIDE

REACTIONS (6)
  - Decreased interest [None]
  - Irritability [None]
  - Violence-related symptom [None]
  - Intentional self-injury [None]
  - Thirst [None]
  - Aggression [None]

NARRATIVE: CASE EVENT DATE: 20210530
